FAERS Safety Report 21672139 (Version 1)
Quarter: 2022Q4

REPORT INFORMATION
  Report Type: Spontaneous
  Country: IT (occurrence: IT)
  Receive Date: 20221202
  Receipt Date: 20221202
  Transmission Date: 20230113
  Serious: Yes (Hospitalization)
  Sender: FDA-Public Use
  Company Number: None

PATIENT
  Age: 56 Year
  Sex: Female
  Weight: 65 kg

DRUGS (8)
  1. CISPLATIN [Suspect]
     Active Substance: CISPLATIN
     Indication: Cervix carcinoma
     Dates: start: 20220923, end: 20220923
  2. PACLITAXEL [Suspect]
     Active Substance: PACLITAXEL
     Indication: Cervix carcinoma
     Dates: start: 20220923, end: 20220923
  3. BEVACIZUMAB [Suspect]
     Active Substance: BEVACIZUMAB
     Indication: Cervix carcinoma
     Dosage: LOTTO1149511A (100 MG) LOTTO 1149390A (400 MG)
     Dates: start: 20220923, end: 20220923
  4. OMEPRAZOLE [Concomitant]
     Active Substance: OMEPRAZOLE
  5. ZOFRAN [Concomitant]
     Active Substance: ONDANSETRON HYDROCHLORIDE
  6. TRIMETON [Concomitant]
     Active Substance: CHLORPHENIRAMINE MALEATE
  7. EMEND [Concomitant]
     Active Substance: APREPITANT
  8. DEXAMETHASONE [Concomitant]
     Active Substance: DEXAMETHASONE

REACTIONS (6)
  - Paraesthesia [Recovered/Resolved]
  - Metabolic acidosis [Recovered/Resolved]
  - Amaurosis [Recovered/Resolved]
  - Vertigo [Recovered/Resolved]
  - Hypotension [Recovered/Resolved]
  - Hypoxia [Recovered/Resolved]

NARRATIVE: CASE EVENT DATE: 20220923
